FAERS Safety Report 14332842 (Version 1)
Quarter: 2017Q4

REPORT INFORMATION
  Report Type: Spontaneous
  Country: US (occurrence: US)
  Receive Date: 20171228
  Receipt Date: 20171228
  Transmission Date: 20180321
  Serious: No
  Sender: FDA-Public Use
  Company Number: US-BAYER-2017-249222

PATIENT
  Sex: Male

DRUGS (2)
  1. TRAMADOL. [Concomitant]
     Active Substance: TRAMADOL
     Dosage: UNK
  2. ALEVE [Suspect]
     Active Substance: NAPROXEN SODIUM
     Indication: PAIN
     Dosage: 2 DF, QD 2 TABLETS DAILY, 8HRS APART
     Route: 065
     Dates: start: 20171219

REACTIONS (2)
  - Product use issue [None]
  - Drug ineffective [Unknown]

NARRATIVE: CASE EVENT DATE: 20171219
